FAERS Safety Report 18705826 (Version 4)
Quarter: 2021Q3

REPORT INFORMATION
  Report Type: Spontaneous
  Country: US (occurrence: US)
  Receive Date: 20210106
  Receipt Date: 20210809
  Transmission Date: 20211014
  Serious: Yes (Other)
  Sender: FDA-Public Use
  Company Number: US-PFIZER INC-2020516729

PATIENT
  Age: 35 Year
  Sex: Female
  Weight: 73 kg

DRUGS (22)
  1. ROCURONIUM BROMIDE. [Concomitant]
     Active Substance: ROCURONIUM BROMIDE
     Dosage: 50 MG
  2. EPINEPHRINE. [Concomitant]
     Active Substance: EPINEPHRINE
     Dosage: 0.4 UG/KG ( 0.4 MG/KG/MIN)
  3. EPINEPHRINE. [Concomitant]
     Active Substance: EPINEPHRINE
     Dosage: UNK
  4. AMIODARONE [Interacting]
     Active Substance: AMIODARONE
     Dosage: 150 MG
     Route: 040
  5. AMIODARONE [Interacting]
     Active Substance: AMIODARONE
     Dosage: 1 MG (1 MG/MIN FOR SIX HOURS)
  6. DOBUTAMINE HYDROCHLORIDE. [Concomitant]
     Active Substance: DOBUTAMINE HYDROCHLORIDE
     Dosage: 0.06 UG/KG (6 MG/KG/MIN)
  7. DOBUTAMINE HYDROCHLORIDE. [Concomitant]
     Active Substance: DOBUTAMINE HYDROCHLORIDE
     Dosage: 6 UG/KG (6 MG/KG/MIN)
  8. EPOPROSTENOL. [Concomitant]
     Active Substance: EPOPROSTENOL
     Dosage: 50 UNK (50 NG/KG/ MIN)
  9. LIDOCAINE HCL [Interacting]
     Active Substance: LIDOCAINE HYDROCHLORIDE
     Dosage: 200 MG
  10. LIDOCAINE HCL [Interacting]
     Active Substance: LIDOCAINE HYDROCHLORIDE
     Dosage: 4 MG (INCREASED THREE HOURS LATER TO 4 MG/MIN)
  11. AMIODARONE [Interacting]
     Active Substance: AMIODARONE
     Indication: VENTRICULAR TACHYCARDIA
     Dosage: 1 MG (1 MG/MIN)
  12. AMIODARONE [Interacting]
     Active Substance: AMIODARONE
     Dosage: 0.5 MG ( 0.5 MG/MIN)
  13. KETAMINE HCL [Concomitant]
     Active Substance: KETAMINE HYDROCHLORIDE
     Dosage: 10 MG, ( 10 MG/H)
  14. LIDOCAINE HCL [Interacting]
     Active Substance: LIDOCAINE HYDROCHLORIDE
     Dosage: 100 MG
  15. DOBUTAMINE HYDROCHLORIDE. [Concomitant]
     Active Substance: DOBUTAMINE HYDROCHLORIDE
     Dosage: 7 UG/KG (7 MG/KG/MIN)
  16. LIDOCAINE HCL [Suspect]
     Active Substance: LIDOCAINE HYDROCHLORIDE
     Indication: VENTRICULAR ARRHYTHMIA
     Dosage: 100 MG
  17. LIDOCAINE HCL [Interacting]
     Active Substance: LIDOCAINE HYDROCHLORIDE
     Dosage: 3 MG ( 3 MG/MIN)
  18. KETAMINE HCL [Concomitant]
     Active Substance: KETAMINE HYDROCHLORIDE
     Dosage: 34 MG
  19. LIDOCAINE HCL [Interacting]
     Active Substance: LIDOCAINE HYDROCHLORIDE
     Dosage: 2 MG (2 MG/MIN)
  20. FENTANYL CITRATE. [Concomitant]
     Active Substance: FENTANYL CITRATE
     Dosage: 200 UG
  21. PROPOFOL. [Concomitant]
     Active Substance: PROPOFOL
     Dosage: 50 MG
  22. DEXMEDETOMIDINE HYDROCHLORIDE. [Concomitant]
     Active Substance: DEXMEDETOMIDINE HYDROCHLORIDE
     Dosage: 0.7 MG/KG (0.7 MG/KG/H)

REACTIONS (4)
  - Generalised tonic-clonic seizure [Recovered/Resolved]
  - Toxicity to various agents [Recovered/Resolved]
  - Status epilepticus [Recovered/Resolved]
  - Drug interaction [Recovered/Resolved]
